FAERS Safety Report 23140643 (Version 5)
Quarter: 2024Q1

REPORT INFORMATION
  Report Type: Spontaneous
  Country: DE (occurrence: DE)
  Receive Date: 20231103
  Receipt Date: 20240305
  Transmission Date: 20240409
  Serious: Yes (Other)
  Sender: FDA-Public Use
  Company Number: DE-SANDOZ-SDZ2023DE045043

PATIENT
  Age: 82 Year
  Sex: Male

DRUGS (32)
  1. TERBINAFINE [Suspect]
     Active Substance: TERBINAFINE
     Indication: Body tinea
     Dosage: 250 MILLIGRAM (250 MG, Q2W)
     Route: 065
     Dates: start: 2012, end: 2013
  2. TERBINAFINE [Suspect]
     Active Substance: TERBINAFINE
     Indication: Onychomycosis
     Dosage: 250 MILLIGRAM, EVERY WEEK (250 MG, QW)
     Route: 065
     Dates: start: 201504, end: 201611
  3. TERBINAFINE [Suspect]
     Active Substance: TERBINAFINE
     Dosage: 250 MILLIGRAM, ONCE A DAY (250 MG, QD FOR 6 WEEK)
     Route: 065
     Dates: start: 201704, end: 201705
  4. TERBINAFINE [Suspect]
     Active Substance: TERBINAFINE
     Dosage: 250 MILLIGRAM, EVERY 3 DAYS
     Route: 065
     Dates: start: 2018
  5. TERBINAFINE [Suspect]
     Active Substance: TERBINAFINE
     Dosage: 250 MILLIGRAM, TWO TIMES A DAY
     Route: 065
     Dates: start: 20180401, end: 20200611
  6. TERBINAFINE [Suspect]
     Active Substance: TERBINAFINE
     Dosage: 250 MILLIGRAM, EVERY WEEK
     Route: 065
     Dates: start: 20180401, end: 20200611
  7. TERBINAFINE [Suspect]
     Active Substance: TERBINAFINE
     Dosage: 250 MILLIGRAM (250 MG, EVERY OTHER DAY)
     Route: 065
     Dates: start: 20200611
  8. TERBINAFINE [Suspect]
     Active Substance: TERBINAFINE
     Dosage: 250 MILLIGRAM EVERY 3 DAYS
     Route: 065
     Dates: start: 20210207
  9. VORICONAZOLE [Suspect]
     Active Substance: VORICONAZOLE
     Indication: Body tinea
     Dosage: 400 MILLIGRAM, DAILY
     Route: 065
     Dates: start: 201708, end: 201710
  10. VORICONAZOLE [Suspect]
     Active Substance: VORICONAZOLE
     Indication: Trichophytosis
     Dosage: 400 MILLIGRAM, EVERY WEEK (200 MG, 2X/WEEK)
     Route: 065
     Dates: start: 201708
  11. VORICONAZOLE [Suspect]
     Active Substance: VORICONAZOLE
     Dosage: 400 MILLIGRAM, EVERY WEEK (400 MG, DAILY)
     Route: 065
     Dates: start: 201711, end: 201712
  12. VORICONAZOLE [Suspect]
     Active Substance: VORICONAZOLE
     Dosage: 200 MILLIGRAM
     Route: 065
     Dates: start: 201711
  13. FLUCONAZOLE [Suspect]
     Active Substance: FLUCONAZOLE
     Indication: Body tinea
     Dosage: 50 MILLIGRAM, ONCE A DAY
     Route: 065
     Dates: start: 201306, end: 201504
  14. FLUCONAZOLE [Suspect]
     Active Substance: FLUCONAZOLE
     Dosage: 200 MILLIGRAM, EVERY WEEK
     Route: 065
     Dates: start: 201504, end: 201611
  15. FLUCONAZOLE [Suspect]
     Active Substance: FLUCONAZOLE
     Dosage: 50 MILLIGRAM (50 MG)
     Route: 065
     Dates: start: 20210207
  16. ITRACONAZOLE [Suspect]
     Active Substance: ITRACONAZOLE
     Indication: Body tinea
     Dosage: TWICE WEEKLY ADMINISTRATION OF 2X 50MG.
     Route: 065
  17. ITRACONAZOLE [Suspect]
     Active Substance: ITRACONAZOLE
     Dosage: 50 MILLIGRAM, 5 DAYS A WEEK
     Route: 065
  18. ITRACONAZOLE [Suspect]
     Active Substance: ITRACONAZOLE
     Dosage: 14 DAYS 2X 1 CAPSULE DAILY
     Route: 065
  19. ITRACONAZOLE [Suspect]
     Active Substance: ITRACONAZOLE
     Dosage: 50 MILLIGRAM, ONCE A DAY (50 MG, QD, SUPER BIOAVAILABILITY)
     Route: 065
     Dates: start: 201611, end: 201703
  20. ITRACONAZOLE [Suspect]
     Active Substance: ITRACONAZOLE
     Dosage: 100 MILLIGRAM, EVERY WEEK (50 MG, QW2)
     Route: 065
     Dates: start: 20210315
  21. ITRACONAZOLE [Suspect]
     Active Substance: ITRACONAZOLE
     Dosage: 100 MILLIGRAM, ONCE A DAY (50 MG, BID FOR 14 DAYS), 50 MG, BID FOR 14 DAYS)
     Route: 065
     Dates: start: 20210315
  22. UREA [Concomitant]
     Active Substance: UREA
     Indication: Body tinea
     Dosage: 40 PERCENT (40 %)
     Route: 065
     Dates: start: 201504
  23. UREA [Concomitant]
     Active Substance: UREA
     Indication: Nail operation
     Dosage: 10 PERCENT (10 %)
     Route: 065
     Dates: start: 20201106
  24. BIFONAZOLE [Concomitant]
     Active Substance: BIFONAZOLE
     Indication: Body tinea
     Dosage: UNK
     Route: 065
     Dates: start: 201504, end: 201611
  25. BIFONAZOLE [Concomitant]
     Active Substance: BIFONAZOLE
     Indication: Nail operation
     Dosage: 1 DOSAGE FORM, ONCE A DAY
     Route: 061
     Dates: start: 201504
  26. BIFONAZOLE [Concomitant]
     Active Substance: BIFONAZOLE
     Dosage: 1 PERCENT
     Route: 065
     Dates: start: 201504
  27. BIFONAZOLE [Concomitant]
     Active Substance: BIFONAZOLE
     Dosage: 1 DOSAGE FORM, ONCE A DAY
     Route: 061
     Dates: start: 20200611
  28. MICONAZOLE [Concomitant]
     Active Substance: MICONAZOLE
     Indication: Product used for unknown indication
     Dosage: UNK
     Route: 065
  29. CICLOPIROX [Concomitant]
     Active Substance: CICLOPIROX\TOCOPHEROL
     Indication: Body tinea
     Dosage: 1 DOSAGE FORM, ONCE A DAY (1 DF, QD)
     Route: 065
     Dates: start: 201504
  30. CICLOPIROX [Concomitant]
     Active Substance: CICLOPIROX\TOCOPHEROL
     Dosage: 1 DOSAGE FORM, ONCE A DAY (1 DF, QD)
     Route: 061
     Dates: start: 20200611
  31. CICLOPIROX [Concomitant]
     Active Substance: CICLOPIROX\TOCOPHEROL
     Dosage: 1 DOSAGE FORM, ONCE A DAY (1 DF, QD)
     Route: 065
     Dates: start: 201504
  32. CLOTRIMAZOLE;TRIAMCINOLONE [Concomitant]
     Indication: Body tinea
     Dosage: UNK, IN ACETONATUM UNGUENTUM BASALIS DA
     Route: 065
     Dates: start: 20210207

REACTIONS (13)
  - Adverse event [Unknown]
  - Disease progression [Unknown]
  - Dermatitis [Unknown]
  - Hepatic enzyme increased [Unknown]
  - Pruritus [Unknown]
  - Photosensitivity reaction [Unknown]
  - Drug intolerance [Unknown]
  - Drug ineffective [Unknown]
  - Drug resistance [Unknown]
  - Adverse drug reaction [Unknown]
  - Arthralgia [Unknown]
  - Drug effective for unapproved indication [Unknown]
  - Off label use [Unknown]

NARRATIVE: CASE EVENT DATE: 20170101
